FAERS Safety Report 25321862 (Version 1)
Quarter: 2025Q2

REPORT INFORMATION
  Report Type: Spontaneous
  Country: TR (occurrence: TR)
  Receive Date: 20250516
  Receipt Date: 20250516
  Transmission Date: 20250717
  Serious: Yes (Death, Hospitalization)
  Sender: AMGEN
  Company Number: TR-AMGEN-TURSP2025090720

PATIENT
  Age: 15 Year
  Sex: Male

DRUGS (1)
  1. BEVACIZUMAB [Suspect]
     Active Substance: BEVACIZUMAB
     Indication: Colorectal cancer
     Route: 065

REACTIONS (8)
  - Death [Fatal]
  - Colorectal cancer recurrent [Unknown]
  - Pelvic adhesions [Unknown]
  - Intestinal metastasis [Unknown]
  - Metastases to liver [Unknown]
  - Hydronephrosis [Unknown]
  - Ileus [Unknown]
  - Off label use [Unknown]
